FAERS Safety Report 4824899-X (Version None)
Quarter: 2005Q4

REPORT INFORMATION
  Report Type: 
  Country: None (occurrence: None)
  Receive Date: 20051110
  Receipt Date: 20051107
  Transmission Date: 20060501
  Serious: Yes (Hospitalization)
  Sender: FDA-Public Use
  Company Number: 422503

PATIENT
  Age: 89 Year
  Sex: Male

DRUGS (7)
  1. CARVEDILOL [Suspect]
     Indication: CARDIAC FAILURE CHRONIC
     Dosage: 2.5MG TWICE PER DAY
     Route: 048
     Dates: start: 20040806
  2. AMLODIPINE BESYLATE [Concomitant]
  3. GLYBURIDE [Concomitant]
  4. LENDORMIN [Concomitant]
  5. OMEPRAL [Concomitant]
  6. LASIX [Concomitant]
  7. ALDACTONE [Concomitant]

REACTIONS (1)
  - HYPOGLYCAEMIC COMA [None]
